FAERS Safety Report 14817160 (Version 2)
Quarter: 2018Q2

REPORT INFORMATION
  Report Type: Report from Study
  Country: US (occurrence: US)
  Receive Date: 20180426
  Receipt Date: 20180529
  Transmission Date: 20180711
  Serious: Yes (Other)
  Sender: FDA-Public Use
  Company Number: US-TAKEDA-2018TUS011606

PATIENT
  Age: 43 Year
  Sex: Male
  Weight: 97 kg

DRUGS (5)
  1. PONATINIB [Suspect]
     Active Substance: PONATINIB
     Dosage: 15 MG, UNK
     Route: 048
  2. PONATINIB [Suspect]
     Active Substance: PONATINIB
     Dosage: 30 MG, UNK
     Route: 048
  3. BLINATUMOMAB [Suspect]
     Active Substance: BLINATUMOMAB
     Indication: ACUTE LYMPHOCYTIC LEUKAEMIA REFRACTORY
     Dosage: 28 UG, QD
     Route: 065
     Dates: start: 20180426, end: 20180524
  4. PONATINIB [Suspect]
     Active Substance: PONATINIB
     Indication: ACUTE LYMPHOCYTIC LEUKAEMIA
     Dosage: 15 MG, QD
     Route: 048
     Dates: start: 20180315
  5. TACROLIMUS. [Suspect]
     Active Substance: TACROLIMUS
     Indication: PRODUCT USED FOR UNKNOWN INDICATION
     Dosage: UNK
     Route: 065

REACTIONS (11)
  - Hypertension [Recovering/Resolving]
  - Cough [Unknown]
  - Pancytopenia [Unknown]
  - Acute graft versus host disease in intestine [Recovered/Resolved]
  - Insomnia [Recovered/Resolved]
  - Toxicity to various agents [Unknown]
  - Hypomagnesaemia [Unknown]
  - Vitamin D deficiency [Not Recovered/Not Resolved]
  - Pain [Recovered/Resolved]
  - Diarrhoea [Unknown]
  - Transaminases increased [Recovered/Resolved]

NARRATIVE: CASE EVENT DATE: 20180330
